FAERS Safety Report 13861197 (Version 2)
Quarter: 2017Q3

REPORT INFORMATION
  Report Type: Spontaneous
  Country: US (occurrence: US)
  Receive Date: 20170811
  Receipt Date: 20170831
  Transmission Date: 20171127
  Serious: No
  Sender: FDA-Public Use
  Company Number: US-BEH-2017082807

PATIENT
  Age: 49 Year
  Sex: Female
  Weight: 53.52 kg

DRUGS (1)
  1. HAEMATE P [Suspect]
     Active Substance: ANTIHEMOPHILIC FACTOR HUMAN
     Indication: VON WILLEBRAND^S DISEASE
     Dosage: 2500 VWF UNITS, PRN
     Route: 042
     Dates: start: 20170805

REACTIONS (3)
  - Dysgeusia [Unknown]
  - Abnormal faeces [Unknown]
  - Urine odour abnormal [Unknown]

NARRATIVE: CASE EVENT DATE: 20170805
